FAERS Safety Report 5424199-3 (Version None)
Quarter: 2007Q3

REPORT INFORMATION
  Report Type: 
  Country: None (occurrence: None)
  Receive Date: 20070726
  Receipt Date: 20060905
  Transmission Date: 20080115
  Serious: Yes (Hospitalization)
  Sender: FDA-Public Use
  Company Number: DRON00207000516

PATIENT
  Sex: Male
  Weight: 55.5 kg

DRUGS (20)
  1. DRONABINOL [Suspect]
     Indication: DECREASED APPETITE
     Dosage: SEE IMAGE
     Route: 048
     Dates: start: 19911112, end: 19911206
  2. DRONABINOL [Suspect]
     Indication: DECREASED APPETITE
     Dosage: SEE IMAGE
     Route: 048
     Dates: start: 19911212, end: 19911220
  3. DRONABINOL [Suspect]
     Indication: DECREASED APPETITE
     Dosage: SEE IMAGE
     Route: 048
     Dates: start: 19920106, end: 19920108
  4. DRONABINOL [Suspect]
     Indication: DECREASED APPETITE
     Dosage: SEE IMAGE
     Route: 048
     Dates: start: 19920110, end: 19920110
  5. DRONABINOL [Suspect]
     Indication: DECREASED APPETITE
     Dosage: SEE IMAGE
     Route: 048
     Dates: start: 19920113, end: 19920113
  6. DRONABINOL [Suspect]
     Indication: DECREASED APPETITE
     Dosage: SEE IMAGE
     Route: 048
     Dates: start: 19920115, end: 19920206
  7. DRONABINOL [Suspect]
     Indication: DECREASED APPETITE
     Dosage: SEE IMAGE
     Route: 048
     Dates: start: 19920219, end: 19920229
  8. DRONABINOL [Suspect]
     Indication: DECREASED APPETITE
     Dosage: SEE IMAGE
     Route: 048
     Dates: start: 19920310, end: 19920327
  9. DRONABINOL [Suspect]
     Indication: DECREASED APPETITE
     Dosage: SEE IMAGE
     Route: 048
     Dates: start: 19920101, end: 19920511
  10. DRONABINOL [Suspect]
     Indication: DECREASED APPETITE
     Dosage: SEE IMAGE
     Route: 048
     Dates: start: 19920513, end: 19920520
  11. DRONABINOL [Suspect]
     Indication: DECREASED APPETITE
     Dosage: SEE IMAGE
     Route: 048
     Dates: start: 19920526, end: 19920612
  12. DRONABINOL [Suspect]
     Indication: DECREASED APPETITE
     Dosage: SEE IMAGE
     Route: 048
     Dates: start: 19920617, end: 19920617
  13. DRONABINOL [Suspect]
     Indication: DECREASED APPETITE
     Dosage: SEE IMAGE
     Route: 048
     Dates: start: 19920618, end: 19920618
  14. DRONABINOL [Suspect]
     Indication: DECREASED APPETITE
     Dosage: SEE IMAGE
     Route: 048
     Dates: start: 19920708, end: 19920713
  15. FLUCONAZOLE [Concomitant]
  16. CLARITHROMYCIN [Concomitant]
  17. PENTAMIDINE (PENTAMIDINE) [Concomitant]
  18. ZOVIRAX [Concomitant]
  19. PER BLUE GREEN ALGAE (SUPER BLUE GREEN ALGAE) [Concomitant]
  20. IMODIUM [Concomitant]

REACTIONS (2)
  - HERPES ZOSTER [None]
  - PNEUMOCYSTIS JIROVECI PNEUMONIA [None]
